FAERS Safety Report 20482628 (Version 1)
Quarter: 2022Q1

REPORT INFORMATION
  Report Type: Spontaneous
  Country: US (occurrence: US)
  Receive Date: 20220217
  Receipt Date: 20220217
  Transmission Date: 20220424
  Serious: No
  Sender: FDA-Public Use
  Company Number: US-AMGEN-USASP2022024799

PATIENT
  Sex: Female

DRUGS (6)
  1. OTEZLA [Suspect]
     Active Substance: APREMILAST
     Indication: Psoriatic arthropathy
     Dosage: 30 MILLIGRAM, BID
     Route: 048
  2. IBUPROFEN [Concomitant]
     Active Substance: IBUPROFEN
  3. JARDIANCE [Concomitant]
     Active Substance: EMPAGLIFLOZIN
  4. METFORMIN HYDROCHLORIDE [Concomitant]
     Active Substance: METFORMIN HYDROCHLORIDE
  5. MYCOPHENOLIC ACID [Concomitant]
     Active Substance: MYCOPHENOLIC ACID
  6. PREDNISONE [Concomitant]
     Active Substance: PREDNISONE

REACTIONS (1)
  - COVID-19 [Not Recovered/Not Resolved]
